FAERS Safety Report 21710559 (Version 2)
Quarter: 2022Q4

REPORT INFORMATION
  Report Type: Spontaneous
  Country: US (occurrence: US)
  Receive Date: 20221212
  Receipt Date: 20221215
  Transmission Date: 20230112
  Serious: No
  Sender: FDA-Public Use
  Company Number: US-AMGEN-USASP2022213940

PATIENT
  Sex: Female

DRUGS (4)
  1. AIMOVIG [Suspect]
     Active Substance: ERENUMAB-AOOE
     Indication: Product used for unknown indication
     Dosage: UNK
     Route: 065
  2. EMGALITY [Concomitant]
     Active Substance: GALCANEZUMAB-GNLM
     Indication: Product used for unknown indication
     Dosage: UNK UNK, UNK
     Route: 065
  3. EMGALITY [Concomitant]
     Active Substance: GALCANEZUMAB-GNLM
     Route: 065
  4. EMGALITY [Concomitant]
     Active Substance: GALCANEZUMAB-GNLM
     Route: 065

REACTIONS (2)
  - Drug ineffective [Unknown]
  - Device difficult to use [Unknown]
